FAERS Safety Report 24960701 (Version 1)
Quarter: 2025Q1

REPORT INFORMATION
  Report Type: Spontaneous
  Country: US (occurrence: None)
  Receive Date: 20250211
  Receipt Date: 20250211
  Transmission Date: 20250409
  Serious: Yes (Hospitalization)
  Sender: FDA-CTU
  Company Number: None

PATIENT
  Age: 18 Year
  Sex: Female
  Weight: 81.19 kg

DRUGS (1)
  1. EMGALITY [Suspect]
     Active Substance: GALCANEZUMAB-GNLM
     Dates: start: 20241029, end: 20241230

REACTIONS (3)
  - Palpitations [None]
  - Palpitations [None]
  - Tremor [None]

NARRATIVE: CASE EVENT DATE: 20241113
